FAERS Safety Report 23467441 (Version 1)
Quarter: 2024Q1

REPORT INFORMATION
  Report Type: Spontaneous
  Country: DE (occurrence: DE)
  Receive Date: 20240201
  Receipt Date: 20240201
  Transmission Date: 20240409
  Serious: Yes (Death)
  Sender: FDA-Public Use
  Company Number: DE-002147023-NVSC2024DE022745

PATIENT
  Sex: Male

DRUGS (1)
  1. SCEMBLIX [Suspect]
     Active Substance: ASCIMINIB HYDROCHLORIDE
     Indication: Chronic myeloid leukaemia
     Dosage: 40 MG (2 X 40 MG)
     Route: 065
     Dates: start: 2023, end: 2023

REACTIONS (1)
  - Blast crisis in myelogenous leukaemia [Fatal]

NARRATIVE: CASE EVENT DATE: 20230101
